FAERS Safety Report 7054384-9 (Version None)
Quarter: 2010Q4

REPORT INFORMATION
  Report Type: 
  Country: None (occurrence: None)
  Receive Date: 20101015
  Receipt Date: 20101007
  Transmission Date: 20110411
  Serious: Yes (Disabling, Other)
  Sender: FDA-Public Use
  Company Number: 2010EU004280

PATIENT
  Age: 66 Year
  Sex: Female
  Weight: 51 kg

DRUGS (4)
  1. PROTOPIC [Suspect]
     Indication: CONDITION AGGRAVATED
     Dosage: 0.1%, BID, TOPICAL
     Route: 061
     Dates: start: 20100415, end: 20100616
  2. PROTOPIC [Suspect]
     Indication: DERMATITIS ATOPIC
     Dosage: 0.1%, BID, TOPICAL
     Route: 061
     Dates: start: 20100415, end: 20100616
  3. DIVINA (MEDROXYPOGESTERONE ACETATE) [Suspect]
     Indication: HORMONE REPLACEMENT THERAPY
     Dosage: ORAL
     Route: 048
     Dates: start: 19950101, end: 20100616
  4. DIVINA (MEDROXYPOGESTERONE ACETATE) [Suspect]
     Indication: HORMONE REPLACEMENT THERAPY
     Dosage: ORAL
     Route: 048
     Dates: start: 20100801

REACTIONS (4)
  - CONDITION AGGRAVATED [None]
  - DRUG TOXICITY [None]
  - ECZEMA [None]
  - JAUNDICE [None]
